APPROVED DRUG PRODUCT: VARIBAR PUDDING
Active Ingredient: BARIUM SULFATE
Strength: 40%
Dosage Form/Route: PASTE;ORAL
Application: N208844 | Product #001
Applicant: BRACCO DIAGNOSTICS INC
Approved: Oct 14, 2016 | RLD: No | RS: No | Type: RX